FAERS Safety Report 7294361-6 (Version None)
Quarter: 2011Q1

REPORT INFORMATION
  Report Type: 
  Country: None (occurrence: None)
  Receive Date: 20110215
  Receipt Date: 20110204
  Transmission Date: 20110831
  Serious: Yes (Hospitalization, Disabling)
  Sender: FDA-Public Use
  Company Number: AR-AMGEN-ARGSP2011008252

PATIENT
  Age: 72 Year
  Sex: Female

DRUGS (3)
  1. BLOKIUM [Concomitant]
     Dosage: 75 MG, 1X/DAY
     Route: 048
  2. ENBREL [Suspect]
     Indication: RHEUMATOID ARTHRITIS
     Dosage: 25 MG EVERY 4 DAYS
     Route: 058
     Dates: start: 20080101, end: 20100801
  3. OMEPRAZOLE [Concomitant]
     Dosage: 20 MG, 1X/DAY
     Route: 048

REACTIONS (2)
  - PHYSICAL DISABILITY [None]
  - MENTAL IMPAIRMENT [None]
